FAERS Safety Report 8047032-2 (Version None)
Quarter: 2012Q1

REPORT INFORMATION
  Report Type: 
  Country: None (occurrence: None)
  Receive Date: 20120116
  Receipt Date: 20120112
  Transmission Date: 20120608
  Serious: Yes (Death, Hospitalization)
  Sender: FDA-Public Use
  Company Number: IT-BAYER-2012-004111

PATIENT

DRUGS (6)
  1. NEXAVAR [Suspect]
     Indication: HEPATIC NEOPLASM MALIGNANT
     Dosage: DAILY DOSE 800 MG
     Route: 048
     Dates: start: 20111116, end: 20120104
  2. ENTECAVIR [Concomitant]
     Dosage: DAILY DOSE .5 MG
     Route: 048
     Dates: start: 20111117, end: 20120107
  3. DURAGESIC-100 [Concomitant]
     Dosage: DAILY DOSE 24 MG
     Route: 062
     Dates: start: 20111117, end: 20120107
  4. ENOXAPARIN SODIUM [Concomitant]
     Dosage: DAILY DOSE 4000 IU
     Route: 058
     Dates: start: 20111116, end: 20120107
  5. ABSTRAL [Concomitant]
     Dosage: 200 MG, PRN
     Route: 048
     Dates: start: 20111117, end: 20120107
  6. LANSOPRAZOLE [Concomitant]
     Dosage: DAILY DOSE 30 MG
     Route: 048
     Dates: start: 20111116, end: 20120107

REACTIONS (2)
  - HEPATIC NEOPLASM MALIGNANT [None]
  - ABDOMINAL PAIN [None]
